FAERS Safety Report 9103282 (Version 1)
Quarter: 2013Q1

REPORT INFORMATION
  Report Type: Spontaneous
  Country: GB (occurrence: None)
  Receive Date: 20130125
  Receipt Date: 20130125
  Transmission Date: 20140127
  Serious: Yes (Other)
  Sender: FDA-Public Use
  Company Number: AUR-APL-2013-00932

PATIENT
  Age: 48 Year
  Sex: Female
  Weight: 57.6 kg

DRUGS (2)
  1. CITALOPRAM (CITALOPRAM) [Suspect]
     Indication: DEPRESSION
     Route: 048
     Dates: start: 20111110, end: 20121010
  2. ZOPICLONE [Concomitant]

REACTIONS (4)
  - Nausea [None]
  - Vertigo [None]
  - Paraesthesia [None]
  - Paraesthesia [None]
